FAERS Safety Report 19288938 (Version 3)
Quarter: 2021Q4

REPORT INFORMATION
  Report Type: Report from Study
  Country: BR (occurrence: BR)
  Receive Date: 20210522
  Receipt Date: 20211217
  Transmission Date: 20220304
  Serious: No
  Sender: FDA-Public Use
  Company Number: NVSC2020BR141403

PATIENT
  Age: 58 Year
  Sex: Female
  Weight: 55.5 kg

DRUGS (15)
  1. COSENTYX [Suspect]
     Active Substance: SECUKINUMAB
     Indication: Psoriatic arthropathy
     Dosage: 150 MG (1 PER APPLICATION)
     Route: 058
     Dates: start: 20190413, end: 201905
  2. COSENTYX [Suspect]
     Active Substance: SECUKINUMAB
     Dosage: 150 MG, QMO
     Route: 058
     Dates: start: 201905, end: 202005
  3. COSENTYX [Suspect]
     Active Substance: SECUKINUMAB
     Dosage: 150 MG, QW
     Route: 058
     Dates: start: 201907
  4. COSENTYX [Suspect]
     Active Substance: SECUKINUMAB
     Dosage: UNK, UNKNOWN
     Route: 065
     Dates: start: 20200422
  5. COSENTYX [Suspect]
     Active Substance: SECUKINUMAB
     Dosage: 300 MG, QMO (02 PREFILLEDPEN 150 MG)
     Route: 058
     Dates: start: 202005
  6. COSENTYX [Suspect]
     Active Substance: SECUKINUMAB
     Dosage: 300 MG (2 PER APPLICATION)
     Route: 065
     Dates: start: 202007
  7. COSENTYX [Suspect]
     Active Substance: SECUKINUMAB
     Dosage: UNK UNK, UNKNOWN
     Route: 065
     Dates: start: 20210426
  8. COSENTYX [Suspect]
     Active Substance: SECUKINUMAB
     Dosage: UNK UNK, UNKNOWN
     Route: 065
     Dates: start: 20210623
  9. ESCITALOPRAM [Suspect]
     Active Substance: ESCITALOPRAM OXALATE
     Indication: Depression
     Dosage: 10 MG, QD
     Route: 048
     Dates: start: 2019
  10. METHOTREXATE [Concomitant]
     Active Substance: METHOTREXATE
     Indication: Psoriasis
     Dosage: 5 DF
     Route: 048
     Dates: start: 2019
  11. FOLIC ACID [Concomitant]
     Active Substance: FOLIC ACID
     Indication: Hypovitaminosis
     Dosage: 1 DF, BID
     Route: 065
     Dates: start: 2011
  12. FOLIC ACID [Concomitant]
     Active Substance: FOLIC ACID
     Dosage: UNK (THRICE A WEEK)
     Route: 065
     Dates: start: 202007
  13. CITALOPRAM [Concomitant]
     Active Substance: CITALOPRAM HYDROBROMIDE
     Indication: Depression
     Dosage: 1 DF, BID
     Route: 048
     Dates: start: 201911
  14. CREAM 91 [Concomitant]
     Indication: Psoriatic arthropathy
     Dosage: UNK, QD,(START DATE WAS 10 YEARS AGO)
     Route: 003
  15. LORAZEPAM [Concomitant]
     Active Substance: LORAZEPAM
     Indication: Depression
     Dosage: 0.2 MG, QD
     Route: 048
     Dates: start: 2015

REACTIONS (17)
  - Insomnia [Recovered/Resolved]
  - Pain [Recovered/Resolved]
  - Asthenia [Recovered/Resolved]
  - Limb discomfort [Recovered/Resolved]
  - Joint swelling [Recovered/Resolved]
  - Tremor [Recovered/Resolved]
  - Muscular weakness [Recovered/Resolved]
  - Swelling [Recovered/Resolved]
  - Spinal pain [Recovered/Resolved]
  - Sluggishness [Recovered/Resolved]
  - Therapeutic product effect incomplete [Recovering/Resolving]
  - Nervousness [Unknown]
  - Anxiety [Unknown]
  - Bradykinesia [Recovered/Resolved]
  - Discomfort [Recovered/Resolved]
  - Arthralgia [Recovered/Resolved]
  - Product dose omission issue [Unknown]

NARRATIVE: CASE EVENT DATE: 20210417
